FAERS Safety Report 6021372-0 (Version None)
Quarter: 2008Q4

REPORT INFORMATION
  Report Type: 
  Country: None (occurrence: None)
  Receive Date: 20081229
  Receipt Date: 20081217
  Transmission Date: 20090506
  Serious: Yes (Hospitalization, Other)
  Sender: FDA-Public Use
  Company Number: B0550080A

PATIENT
  Age: 26 Year
  Sex: Male

DRUGS (3)
  1. LAMIVUDINE [Suspect]
     Indication: HIV INFECTION
     Route: 048
     Dates: start: 20020601
  2. SANILVUDINE [Suspect]
     Indication: HIV INFECTION
     Route: 048
     Dates: start: 20020601
  3. LOPINAVIR AND RITONAVIR [Suspect]
     Indication: HIV INFECTION
     Route: 048
     Dates: start: 20020601

REACTIONS (3)
  - BLOOD CREATININE INCREASED [None]
  - IMMUNE RECONSTITUTION SYNDROME [None]
  - PULMONARY SARCOIDOSIS [None]
